FAERS Safety Report 8917605 (Version 4)
Quarter: 2013Q2

REPORT INFORMATION
  Report Type: Spontaneous
  Country: US (occurrence: US)
  Receive Date: 20121119
  Receipt Date: 20130424
  Transmission Date: 20140414
  Serious: No
  Sender: FDA-Public Use
  Company Number: US-009507513-1210USA014377

PATIENT
  Sex: Female

DRUGS (3)
  1. VICTRELIS [Suspect]
     Indication: HEPATITIS C
     Dosage: UNK
     Route: 048
     Dates: start: 20121119
  2. RIBAVIRIN [Suspect]
     Indication: HEPATITIS C
     Dosage: UNK
     Route: 048
     Dates: start: 20121015
  3. PEGASYS [Suspect]
     Indication: HEPATITIS C
     Dosage: UNK
     Dates: start: 20121015

REACTIONS (17)
  - Nasal dryness [Unknown]
  - Headache [Unknown]
  - Lip dry [Unknown]
  - Lip pain [Unknown]
  - Malaise [Unknown]
  - Cystitis [Unknown]
  - Headache [Unknown]
  - Nodule [Unknown]
  - Dysgeusia [Unknown]
  - Leukopenia [Unknown]
  - Leukopenia [Unknown]
  - White blood cell count decreased [Unknown]
  - Anaemia [Unknown]
  - Haemoglobin decreased [Unknown]
  - Nausea [Unknown]
  - Rash [Unknown]
  - Nausea [Unknown]
